FAERS Safety Report 25971742 (Version 2)
Quarter: 2025Q4

REPORT INFORMATION
  Report Type: Spontaneous
  Country: CA (occurrence: CA)
  Receive Date: 20251029
  Receipt Date: 20251112
  Transmission Date: 20260117
  Serious: Yes (Hospitalization)
  Sender: Haleon PLC
  Company Number: CA-HALEON-2269919

PATIENT
  Age: 30 Year
  Sex: Male

DRUGS (70)
  1. DICLOFENAC SODIUM [Suspect]
     Active Substance: DICLOFENAC SODIUM
     Indication: Neuralgia
     Dosage: UNK
     Route: 065
  2. DICLOFENAC SODIUM [Suspect]
     Active Substance: DICLOFENAC SODIUM
     Indication: Guillain-Barre syndrome
  3. GABAPENTIN [Suspect]
     Active Substance: GABAPENTIN
     Indication: Neuralgia
     Dosage: 1800 MG, QD
     Route: 050
  4. GABAPENTIN [Suspect]
     Active Substance: GABAPENTIN
     Indication: Guillain-Barre syndrome
     Dosage: 1200 MG, QD
     Route: 050
  5. GABAPENTIN [Suspect]
     Active Substance: GABAPENTIN
     Dosage: 900 MG
     Route: 065
  6. GABAPENTIN [Suspect]
     Active Substance: GABAPENTIN
     Dosage: UNK
     Route: 048
  7. GABAPENTIN [Suspect]
     Active Substance: GABAPENTIN
     Route: 048
  8. GABAPENTIN [Suspect]
     Active Substance: GABAPENTIN
     Dosage: 1800 MG
     Route: 050
  9. GABAPENTIN [Suspect]
     Active Substance: GABAPENTIN
     Dosage: 1200 MG
     Route: 050
  10. GABAPENTIN [Suspect]
     Active Substance: GABAPENTIN
     Dosage: 300 MG
     Route: 050
  11. GABAPENTIN [Suspect]
     Active Substance: GABAPENTIN
     Dosage: 900 MG
     Route: 050
  12. GABAPENTIN [Suspect]
     Active Substance: GABAPENTIN
     Dosage: 3900 MG
     Route: 050
  13. GABAPENTIN [Suspect]
     Active Substance: GABAPENTIN
     Dosage: 3600 MG
     Route: 050
  14. GABAPENTIN [Suspect]
     Active Substance: GABAPENTIN
     Dosage: 3600 MG, QD
     Route: 065
  15. GABAPENTIN [Suspect]
     Active Substance: GABAPENTIN
     Dosage: 900 MG, QD
     Route: 065
  16. HYDROMORPHONE [Suspect]
     Active Substance: HYDROMORPHONE
     Indication: Neuralgia
     Dosage: 1 MG
     Route: 042
  17. HYDROMORPHONE [Suspect]
     Active Substance: HYDROMORPHONE
     Indication: Guillain-Barre syndrome
     Dosage: 7 MG
     Route: 065
  18. HYDROMORPHONE [Suspect]
     Active Substance: HYDROMORPHONE
     Dosage: 30 MG
     Route: 030
  19. HYDROMORPHONE [Suspect]
     Active Substance: HYDROMORPHONE
     Dosage: 1 MG
     Route: 048
  20. HYDROMORPHONE [Suspect]
     Active Substance: HYDROMORPHONE
     Dosage: UNK
     Route: 048
  21. HYDROMORPHONE [Suspect]
     Active Substance: HYDROMORPHONE
     Route: 048
  22. HYDROMORPHONE [Suspect]
     Active Substance: HYDROMORPHONE
     Dosage: 7 MG
     Route: 030
  23. HYDROMORPHONE [Suspect]
     Active Substance: HYDROMORPHONE
     Indication: Neuralgia
     Route: 065
  24. HYDROMORPHONE [Suspect]
     Active Substance: HYDROMORPHONE
     Indication: Guillain-Barre syndrome
  25. IMMUNE GLOBULIN NOS [Suspect]
     Active Substance: IMMUNE GLOBULIN NOS
     Indication: Guillain-Barre syndrome
     Route: 065
  26. NORTRIPTYLINE [Concomitant]
     Active Substance: NORTRIPTYLINE
     Indication: Neuralgia
     Dosage: 35 MG, QD
     Route: 065
  27. PHENYTOIN [Suspect]
     Active Substance: PHENYTOIN
     Indication: Neuralgia
     Dosage: 1500 MG, QD
     Route: 065
  28. PHENYTOIN [Suspect]
     Active Substance: PHENYTOIN
     Dosage: 1500 MG
     Route: 065
  29. VENLAFAXINE HYDROCHLORIDE [Suspect]
     Active Substance: VENLAFAXINE HYDROCHLORIDE
     Indication: Neuralgia
     Dosage: 75 MG
     Route: 065
  30. VENLAFAXINE HYDROCHLORIDE [Suspect]
     Active Substance: VENLAFAXINE HYDROCHLORIDE
     Indication: Guillain-Barre syndrome
     Dosage: 75 MG, QD
     Route: 065
  31. ZOPICLONE [Suspect]
     Active Substance: ZOPICLONE
     Indication: Neuralgia
     Dosage: 7.5 MG, QD
     Route: 065
  32. ZOPICLONE [Suspect]
     Active Substance: ZOPICLONE
     Indication: Guillain-Barre syndrome
     Dosage: UNK
     Route: 065
  33. ADVIL [Suspect]
     Active Substance: IBUPROFEN
     Indication: Neuralgia
     Route: 065
  34. ADVIL [Suspect]
     Active Substance: IBUPROFEN
     Indication: Guillain-Barre syndrome
     Route: 042
  35. ACETAMINOPHEN [Suspect]
     Active Substance: ACETAMINOPHEN
     Indication: Neuralgia
     Dosage: 3900 MG, QD
     Route: 065
  36. ACETAMINOPHEN [Suspect]
     Active Substance: ACETAMINOPHEN
     Indication: Guillain-Barre syndrome
     Dosage: 3900 MG?ROUTE: TRANSDERMAL
  37. ACETAMINOPHEN [Suspect]
     Active Substance: ACETAMINOPHEN
     Dosage: 3900 MG
     Route: 065
  38. ACETAMINOPHEN [Suspect]
     Active Substance: ACETAMINOPHEN
     Dosage: 3000 MG?ROUTE: TRANSDERMAL
  39. ACETAMINOPHEN [Suspect]
     Active Substance: ACETAMINOPHEN
     Dosage: 2600 MG?ROUTE: TRANSDERMAL
  40. ACETAMINOPHEN [Suspect]
     Active Substance: ACETAMINOPHEN
     Dosage: 3900 MG
     Route: 065
  41. BUPIVACAINE [Concomitant]
     Active Substance: BUPIVACAINE
     Indication: Neuralgia
     Dosage: UNK (SOLUTION BLOCK/INFILTRATION)
     Route: 065
  42. DILAUDID [Suspect]
     Active Substance: HYDROMORPHONE HYDROCHLORIDE
     Indication: Neuralgia
     Dosage: 1 MG
     Route: 042
  43. DILAUDID [Suspect]
     Active Substance: HYDROMORPHONE HYDROCHLORIDE
     Indication: Guillain-Barre syndrome
     Dosage: 30 MG
     Route: 065
  44. DILAUDID [Suspect]
     Active Substance: HYDROMORPHONE HYDROCHLORIDE
     Dosage: 30 MG, QD
     Route: 065
  45. FENTANYL [Suspect]
     Active Substance: FENTANYL
     Indication: Neuralgia
     Dosage: UNK
     Route: 065
  46. FENTANYL [Suspect]
     Active Substance: FENTANYL
     Indication: Guillain-Barre syndrome
     Route: 065
  47. FENTANYL [Suspect]
     Active Substance: FENTANYL
     Dosage: 25 MG (1 EVERY 1 HOURS)
     Route: 065
  48. FENTANYL [Suspect]
     Active Substance: FENTANYL
     Dosage: 25 MG (1 EVERY 1 HOURS)?ROUTE: TRANSDERMAL
  49. FENTANYL [Suspect]
     Active Substance: FENTANYL
     Dosage: 37.5 MG (1 EVERY 1 HOURS)?ROUTE: TRANSDERMAL
  50. KETAMINE [Suspect]
     Active Substance: KETAMINE
     Indication: Neuralgia
     Dosage: 40 MG, QD
     Route: 065
  51. KETAMINE [Suspect]
     Active Substance: KETAMINE
     Indication: Guillain-Barre syndrome
     Dosage: UNK
     Route: 042
  52. KETAMINE [Suspect]
     Active Substance: KETAMINE
     Route: 042
  53. KETAMINE [Suspect]
     Active Substance: KETAMINE
     Dosage: 30 MG
     Route: 050
  54. KETAMINE [Suspect]
     Active Substance: KETAMINE
     Dosage: 40 MG
     Route: 050
  55. LIDOCAINE [Suspect]
     Active Substance: LIDOCAINE
     Indication: Neuralgia
     Dosage: 3.84 MG
     Route: 065
  56. LIDOCAINE [Suspect]
     Active Substance: LIDOCAINE
     Indication: Guillain-Barre syndrome
     Dosage: 3.84 MG (1 EVERY 1 HOURS) (TOPICAL)
  57. MORPHINE [Concomitant]
     Active Substance: MORPHINE
     Indication: Neuralgia
     Route: 065
  58. NABILONE [Suspect]
     Active Substance: NABILONE
     Indication: Product used for unknown indication
     Dosage: 8 MG
     Route: 065
  59. NABILONE [Suspect]
     Active Substance: NABILONE
     Indication: Neuralgia
     Dosage: 2 MG
     Route: 065
  60. NABILONE [Suspect]
     Active Substance: NABILONE
     Indication: Guillain-Barre syndrome
     Dosage: UNK
     Route: 042
  61. NABILONE [Suspect]
     Active Substance: NABILONE
     Route: 042
  62. NABILONE [Suspect]
     Active Substance: NABILONE
     Dosage: 8 MG
     Route: 050
  63. NABILONE [Suspect]
     Active Substance: NABILONE
     Dosage: 2 MG, QD
     Route: 065
  64. NABILONE [Suspect]
     Active Substance: NABILONE
     Dosage: 6 MG, QD
     Route: 065
  65. OLANZAPINE [Suspect]
     Active Substance: OLANZAPINE
     Indication: Neuralgia
     Dosage: 3 MG, QD
     Route: 065
  66. OLANZAPINE [Suspect]
     Active Substance: OLANZAPINE
     Indication: Guillain-Barre syndrome
     Dosage: 2.5 MG
     Route: 065
  67. OLANZAPINE [Suspect]
     Active Substance: OLANZAPINE
     Dosage: 2.5 MG, QD
     Route: 065
  68. OLANZAPINE [Suspect]
     Active Substance: OLANZAPINE
     Dosage: 3 MG
     Route: 065
  69. ACETAMINOPHEN [Suspect]
     Active Substance: ACETAMINOPHEN
     Indication: Neuralgia
     Route: 065
  70. ACETAMINOPHEN [Suspect]
     Active Substance: ACETAMINOPHEN
     Indication: Guillain-Barre syndrome

REACTIONS (3)
  - Inspiratory capacity decreased [Unknown]
  - Drug ineffective [Unknown]
  - Incorrect dose administered [Unknown]
